FAERS Safety Report 13694548 (Version 1)
Quarter: 2017Q2

REPORT INFORMATION
  Report Type: Spontaneous
  Country: US (occurrence: US)
  Receive Date: 20170627
  Receipt Date: 20170627
  Transmission Date: 20170830
  Serious: No
  Sender: FDA-Public Use
  Company Number: US-BAYER-2017-122549

PATIENT
  Age: 17 Year
  Sex: Female

DRUGS (1)
  1. SKYLA [Suspect]
     Active Substance: LEVONORGESTREL
     Indication: CONTRACEPTION
     Dosage: 14 MCG/24HR, CONT
     Route: 015
     Dates: start: 20170622, end: 20170622

REACTIONS (5)
  - Procedural nausea [None]
  - Abdominal pain lower [None]
  - Procedural dizziness [None]
  - Nervousness [None]
  - Retching [None]

NARRATIVE: CASE EVENT DATE: 20170622
